FAERS Safety Report 6655863-6 (Version None)
Quarter: 2010Q1

REPORT INFORMATION
  Report Type: 
  Country: None (occurrence: None)
  Receive Date: 20100329
  Receipt Date: 20100315
  Transmission Date: 20100710
  Serious: Yes (Other)
  Sender: FDA-Public Use
  Company Number: IT-CELGENEUS-083-C5013-10010441

PATIENT
  Sex: Male
  Weight: 75 kg

DRUGS (10)
  1. CC-5013 [Suspect]
     Indication: MANTLE CELL LYMPHOMA
     Route: 048
     Dates: start: 20091109, end: 20091119
  2. CC-5013 [Suspect]
     Route: 048
     Dates: start: 20091221, end: 20100104
  3. LAMIVUDINE [Concomitant]
     Indication: PROPHYLAXIS
     Route: 048
     Dates: start: 20091127
  4. NEUPOGEN [Concomitant]
     Indication: DRUG USE FOR UNKNOWN INDICATION
     Route: 065
  5. SULFAMETHOXAZOLE AND TRIMETHOPRIM [Concomitant]
     Dosage: 80/400MG
     Route: 048
     Dates: start: 20090608
  6. VALACICLOVIR [Concomitant]
     Indication: ANTIVIRAL PROPHYLAXIS
     Route: 048
     Dates: start: 20090608
  7. ENOXAPARINA [Concomitant]
     Route: 058
     Dates: start: 20091109
  8. PREDNISONE [Concomitant]
     Route: 048
     Dates: start: 20090608
  9. ALLOPURINOL [Concomitant]
     Indication: PROPHYLAXIS
     Route: 048
     Dates: start: 20090608
  10. OMEPRAZOLE [Concomitant]
     Indication: PROPHYLAXIS
     Route: 048
     Dates: start: 20090608

REACTIONS (1)
  - HEPATOTOXICITY [None]
